FAERS Safety Report 4268721-1 (Version None)
Quarter: 2004Q1

REPORT INFORMATION
  Report Type: 
  Country: None (occurrence: None)
  Receive Date: 20040112
  Receipt Date: 20040105
  Transmission Date: 20041129
  Serious: Yes (Death, Hospitalization)
  Sender: FDA-Public Use
  Company Number: PHBS2004FR00538

PATIENT
  Age: 40 Year
  Sex: Female

DRUGS (4)
  1. DICLOFENAC SODIUM [Suspect]
  2. ACETAMINOPHEN [Suspect]
  3. KETOPROFEN [Suspect]
  4. INDOMETHACIN [Suspect]

REACTIONS (15)
  - ALPHA TUMOUR NECROSIS FACTOR INCREASED [None]
  - ANURIA [None]
  - BLOOD CREATINE PHOSPHOKINASE INCREASED [None]
  - BLOOD CREATININE INCREASED [None]
  - BLOOD LACTATE DEHYDROGENASE INCREASED [None]
  - BLOOD LACTIC ACID INCREASED [None]
  - BLOOD PRESSURE DECREASED [None]
  - ENCEPHALOPATHY [None]
  - ENDOTHELIN INCREASED [None]
  - HEPATIC FAILURE [None]
  - INFLAMMATION [None]
  - INTERLEUKIN LEVEL INCREASED [None]
  - POISONING DELIBERATE [None]
  - SHOCK [None]
  - VASOCONSTRICTION [None]
